FAERS Safety Report 11025956 (Version 1)
Quarter: 2015Q2

REPORT INFORMATION
  Report Type: Spontaneous
  Country: DK (occurrence: FR)
  Receive Date: 20150414
  Receipt Date: 20150414
  Transmission Date: 20150821
  Serious: Yes (Hospitalization)
  Sender: FDA-Public Use
  Company Number: FR-FRI-1000075833

PATIENT
  Age: 78 Year
  Sex: Male

DRUGS (2)
  1. ASPEGIC [Suspect]
     Active Substance: ASPIRIN DL-LYSINE
     Indication: PRODUCT USED FOR UNKNOWN INDICATION
     Dosage: 1 DF
     Route: 048
     Dates: end: 20150312
  2. ESCITALOPRAM [Suspect]
     Active Substance: ESCITALOPRAM OXALATE
     Indication: DEPRESSION
     Dosage: 5 MG
     Route: 048
     Dates: end: 20150312

REACTIONS (3)
  - Hemianopia homonymous [Recovering/Resolving]
  - Cerebral haemorrhage [Recovering/Resolving]
  - Neurologic neglect syndrome [Recovering/Resolving]

NARRATIVE: CASE EVENT DATE: 20150312
